FAERS Safety Report 4434225-6 (Version None)
Quarter: 2004Q3

REPORT INFORMATION
  Report Type: 
  Country: None (occurrence: None)
  Receive Date: 20040825
  Receipt Date: 20040811
  Transmission Date: 20050211
  Serious: Yes (Death, Hospitalization)
  Sender: FDA-Public Use
  Company Number: EWC040840252

PATIENT
  Age: 71 Year
  Sex: Male

DRUGS (2)
  1. GEMCITABIEN HYDROCHLORIDE          (GEMCITABINE) [Suspect]
     Indication: LUNG SQUAMOUS CELL CARCINOMA STAGE III
     Dosage: 200 MG
  2. RADIOTHERAPY [Concomitant]

REACTIONS (1)
  - PULMONARY FIBROSIS [None]
